FAERS Safety Report 18885551 (Version 1)
Quarter: 2021Q1

REPORT INFORMATION
  Report Type: Spontaneous
  Country: US (occurrence: US)
  Receive Date: 20210212
  Receipt Date: 20210212
  Transmission Date: 20210420
  Serious: Yes (Hospitalization)
  Sender: FDA-Public Use
  Company Number: None

PATIENT
  Age: 79 Year
  Sex: Male

DRUGS (15)
  1. NINLARO [Suspect]
     Active Substance: IXAZOMIB CITRATE
     Dosage: ?          OTHER FREQUENCY:EVERY 3 WEEKS;?
     Route: 048
  2. ATORVASTATIN CALCIUM. [Concomitant]
     Active Substance: ATORVASTATIN CALCIUM
  3. ASPIRIN 81 [Concomitant]
     Active Substance: ASPIRIN
  4. ARTIFICIAL TEARS [Concomitant]
     Active Substance: GLYCERIN\HYPROMELLOSES\POLYETHYLENE GLYCOL 400
  5. COZAAR [Concomitant]
     Active Substance: LOSARTAN POTASSIUM
  6. COLACE [Concomitant]
     Active Substance: DOCUSATE SODIUM
  7. HYDROXYZINE HCL [Concomitant]
     Active Substance: HYDROXYZINE HYDROCHLORIDE
  8. AVODART [Concomitant]
     Active Substance: DUTASTERIDE
  9. NIFEDIPINE. [Concomitant]
     Active Substance: NIFEDIPINE
  10. VELCADE [Concomitant]
     Active Substance: BORTEZOMIB
  11. SENNA LAXATIVE [Concomitant]
     Active Substance: SENNOSIDES
  12. HYDROCHLOROTHIAZIDE. [Concomitant]
     Active Substance: HYDROCHLOROTHIAZIDE
  13. FLOMAX [Concomitant]
     Active Substance: TAMSULOSIN HYDROCHLORIDE
  14. VALACYCLOVIR HCL [Concomitant]
     Active Substance: VALACYCLOVIR HYDROCHLORIDE
  15. DEXAMETHASONE. [Concomitant]
     Active Substance: DEXAMETHASONE

REACTIONS (1)
  - Hospitalisation [None]

NARRATIVE: CASE EVENT DATE: 20210212
